FAERS Safety Report 15348844 (Version 1)
Quarter: 2018Q3

REPORT INFORMATION
  Report Type: Report from Study
  Country: EG (occurrence: EG)
  Receive Date: 20180904
  Receipt Date: 20180904
  Transmission Date: 20181010
  Serious: Yes (Other)
  Sender: FDA-Public Use
  Company Number: EG-MYLANLABS-2018M1064511

PATIENT
  Sex: Female

DRUGS (2)
  1. CYTARABINE. [Suspect]
     Active Substance: CYTARABINE
     Dosage: 3 G/M2 TWO TIMES A DAY ON DAYS 1, 3 AND 5 AS CONSOLIDATION TREATMENT
     Route: 065
  2. CYTARABINE. [Suspect]
     Active Substance: CYTARABINE
     Indication: ACUTE MYELOID LEUKAEMIA
     Dosage: AS INDUCTION THERAPY, ADMINISTERED WITH AN UNSPECIFIED ANTHRACYCLINE FOLLOWED BY CONSOLIDATION TR...
     Route: 065

REACTIONS (2)
  - Maternal exposure during pregnancy [Unknown]
  - Tumour lysis syndrome [Unknown]
